FAERS Safety Report 16562009 (Version 2)
Quarter: 2020Q3

REPORT INFORMATION
  Report Type: Spontaneous
  Country: FR (occurrence: FR)
  Receive Date: 20190711
  Receipt Date: 20200810
  Transmission Date: 20201102
  Serious: Yes (Hospitalization, Disabling, Other)
  Sender: FDA-Public Use
  Company Number: FR-MYLANLABS-2019M1063684

PATIENT
  Age: 81 Year
  Sex: Female
  Weight: 48 kg

DRUGS (35)
  1. AMIODARONE [Suspect]
     Active Substance: AMIODARONE
     Dosage: UNK, (1 UNIT ON MORNING EXCEPT SUNDAY AND SATURDAY)
     Route: 065
     Dates: start: 20170515, end: 20180220
  2. UVEDOSE [Concomitant]
     Active Substance: CHOLECALCIFEROL
     Dosage: UNK
     Route: 065
     Dates: start: 2018
  3. DEBRIDAT                           /00465201/ [Concomitant]
     Active Substance: TRIMEBUTINE MALEATE
     Dosage: UNK
     Route: 065
  4. CORDARONE [Suspect]
     Active Substance: AMIODARONE HYDROCHLORIDE
     Dosage: 1 UNIT ON MORNING EXCEPT SUNDAY
     Route: 065
     Dates: start: 201707, end: 20170713
  5. STILNOX [Concomitant]
     Active Substance: ZOLPIDEM TARTRATE
     Dosage: 10 MILLIGRAM, QD, (10 MG, QD 1 UNIT ON EVENING)
     Route: 065
  6. LASILIX                            /00032601/ [Concomitant]
     Active Substance: FUROSEMIDE
     Dosage: 1 / 4UNIT ON MORNING, (0.25 DOSAGE FORM, QD)
     Route: 065
     Dates: start: 201707
  7. LASILIX                            /00032601/ [Concomitant]
     Active Substance: FUROSEMIDE
     Dosage: 1 DF, QD, 1 UNIT ON MORNING
     Route: 065
     Dates: start: 2018
  8. LASILIX                            /00032601/ [Concomitant]
     Active Substance: FUROSEMIDE
     Dosage: 1 DF, QD, 1 UNIT ON MORNING
     Route: 065
     Dates: start: 20170515, end: 201707
  9. XARELTO [Concomitant]
     Active Substance: RIVAROXABAN
     Dosage: 1 DF, QD, 1 UNIT ON EVENING
     Route: 065
     Dates: start: 201707
  10. LEVOTHYROX [Concomitant]
     Active Substance: LEVOTHYROXINE
     Dosage: 1 DF, QD, 1 UNIT DAILY ON MORNING
     Route: 065
     Dates: start: 2003
  11. PREDNISONE. [Concomitant]
     Active Substance: PREDNISONE
     Dosage: 40 MILLIGRAM, QD
     Dates: start: 20180123
  12. CYMBALTA [Concomitant]
     Active Substance: DULOXETINE HYDROCHLORIDE
     Dosage: UNK
     Route: 065
  13. ATENOLOL. [Concomitant]
     Active Substance: ATENOLOL
     Dosage: 0.5 DF, QD (1 / 2UNIT DAILY ON MORNING), (1 / 2UNIT DAILY)
     Route: 065
     Dates: start: 20170803
  14. AMIODARONE [Suspect]
     Active Substance: AMIODARONE
     Dosage: 1 UNIT ON MORNING EXCEPT SUNDAY  AND SATURDAY
     Route: 065
     Dates: start: 201801
  15. CORDARONE [Suspect]
     Active Substance: AMIODARONE HYDROCHLORIDE
     Dosage: UNK
     Route: 065
  16. ZOLPIDEM [Concomitant]
     Active Substance: ZOLPIDEM TARTRATE
     Dosage: UNK
     Route: 065
     Dates: start: 2018
  17. ATENOLOL. [Concomitant]
     Active Substance: ATENOLOL
     Dosage: 1 DF, QD, 1 UNIT DAILY
     Route: 065
     Dates: start: 201706
  18. MODOPAR [Concomitant]
     Active Substance: BENSERAZIDE HYDROCHLORIDE\LEVODOPA
     Dosage: 3 DF, QD, 3 UNITS DAILY
     Route: 065
     Dates: start: 2018
  19. LANSOPRAZOLE. [Concomitant]
     Active Substance: LANSOPRAZOLE
     Dosage: 1 DF, QD, 1UNIT DAILY
     Route: 065
     Dates: start: 2018
  20. AMIODARONE [Suspect]
     Active Substance: AMIODARONE
     Indication: ATRIAL FIBRILLATION
     Dosage: UNK
     Route: 065
     Dates: start: 201708
  21. CORDARONE [Suspect]
     Active Substance: AMIODARONE HYDROCHLORIDE
     Dosage: 1 DF, QD, 1 UNIT ON MORNING
     Route: 065
  22. ALDACTONE [Concomitant]
     Active Substance: SPIRONOLACTONE
     Dosage: UNK UNK, QD, ? UNITS DAILY, (0.5 DOSAGE FORM)
     Route: 065
     Dates: start: 20170803
  23. DIFFU K [Concomitant]
     Active Substance: POTASSIUM CHLORIDE
     Dosage: 1 DF, BID, 1 UNIT TWICE DAILY
     Route: 065
     Dates: start: 201707
  24. DIFFU K [Concomitant]
     Active Substance: POTASSIUM CHLORIDE
     Dosage: 3 DOSAGE FORM, QD
     Route: 065
  25. STILNOX [Concomitant]
     Active Substance: ZOLPIDEM TARTRATE
     Dosage: 1 DF, QD, 1 UNIT DAILY
     Route: 065
  26. CORDARONE [Suspect]
     Active Substance: AMIODARONE HYDROCHLORIDE
     Dosage: 2 DF, QD, 2 UNITS ON MORNING
     Route: 065
     Dates: start: 20170515
  27. DULOXETINE. [Concomitant]
     Active Substance: DULOXETINE
     Dosage: 2 DF, QD, 2 UNITS DAILY
     Route: 065
     Dates: start: 20170803
  28. MOVICOL?HALF [Concomitant]
     Dosage: 1 DF, BID, 1 UNIT  TWICE DAILY
     Route: 065
     Dates: start: 201706
  29. FORLAX [Concomitant]
     Active Substance: POLYETHYLENE GLYCOL 4000
     Dosage: 1 DF, QD, 1UNIT DAILY
     Route: 065
     Dates: start: 20170803
  30. XARELTO [Concomitant]
     Active Substance: RIVAROXABAN
     Dosage: 1 DF, QD, 1 UNIT ON EVENING
     Route: 065
     Dates: start: 20170515, end: 201707
  31. CORDARONE [Suspect]
     Active Substance: AMIODARONE HYDROCHLORIDE
     Indication: PRODUCT USED FOR UNKNOWN INDICATION
     Dosage: UNK
     Route: 065
     Dates: start: 20170810, end: 201802
  32. DIFFU K [Concomitant]
     Active Substance: POTASSIUM CHLORIDE
     Dosage: 1 DF, TID, 1 UNIT 3 TIMESDAILY
     Route: 065
     Dates: start: 201707, end: 201707
  33. DIFFU K [Concomitant]
     Active Substance: POTASSIUM CHLORIDE
     Dosage: 2 DF, TID, 2 UNITS 3 TIMES  DAILY
     Route: 065
     Dates: start: 20170803
  34. CORDARONE [Suspect]
     Active Substance: AMIODARONE HYDROCHLORIDE
     Dosage: UNK
     Route: 065
     Dates: end: 201802
  35. ATENOLOL. [Concomitant]
     Active Substance: ATENOLOL
     Dosage: UNK
     Route: 065

REACTIONS (26)
  - Optic atrophy [Unknown]
  - Atrial fibrillation [Unknown]
  - Ophthalmic vein thrombosis [Unknown]
  - Pleural effusion [Unknown]
  - Hypercapnia [Unknown]
  - Arterial disorder [Unknown]
  - Neuropathy peripheral [Unknown]
  - Parkinsonism [Unknown]
  - Tremor [Unknown]
  - Optic neuritis [Not Recovered/Not Resolved]
  - Hypoxia [Unknown]
  - Pneumonia [Unknown]
  - Dyspnoea [Unknown]
  - Depression [Unknown]
  - Optic neuropathy [Unknown]
  - Eye haemorrhage [Unknown]
  - Anaemia [Unknown]
  - Diplopia [Unknown]
  - Papilloedema [Not Recovered/Not Resolved]
  - Aortic valve calcification [Unknown]
  - Cerebellar syndrome [Unknown]
  - Cardiac failure [Unknown]
  - Visual acuity reduced [Recovering/Resolving]
  - Condition aggravated [Unknown]
  - Retinal vein thrombosis [Unknown]
  - Extrapyramidal disorder [Unknown]

NARRATIVE: CASE EVENT DATE: 201705
